FAERS Safety Report 7580702-9 (Version None)
Quarter: 2011Q2

REPORT INFORMATION
  Report Type: 
  Country: None (occurrence: None)
  Receive Date: 20110629
  Receipt Date: 20110620
  Transmission Date: 20111010
  Serious: Yes (Hospitalization)
  Sender: FDA-Public Use
  Company Number: US-ELI_LILLY_AND_COMPANY-US200903003343

PATIENT
  Sex: Female
  Weight: 115.19 kg

DRUGS (11)
  1. NORVASC [Concomitant]
  2. HUMALOG MIX 75/25 [Concomitant]
  3. PREVACID [Concomitant]
  4. ASPIRIN [Concomitant]
  5. LANTUS [Concomitant]
  6. LYRICA [Concomitant]
  7. BYETTA [Suspect]
     Dosage: UNK, UNK
     Dates: start: 20070501, end: 20080601
  8. UNIRETIC [Concomitant]
  9. PROPRANOLOL [Concomitant]
  10. MOTRIN [Concomitant]
  11. AVALIDE [Concomitant]

REACTIONS (4)
  - OFF LABEL USE [None]
  - PANCREATITIS [None]
  - CHOLECYSTITIS [None]
  - RENAL INJURY [None]
